FAERS Safety Report 16216114 (Version 2)
Quarter: 2019Q2

REPORT INFORMATION
  Report Type: Report from Study
  Country: JP (occurrence: JP)
  Receive Date: 20190419
  Receipt Date: 20190510
  Transmission Date: 20190711
  Serious: Yes (Death, Other)
  Sender: FDA-Public Use
  Company Number: JP-GLAXOSMITHKLINE-JP2019JPN069935

PATIENT
  Age: 47 Year
  Sex: Female
  Weight: 94 kg

DRUGS (5)
  1. MEPOLIZUMAB [Suspect]
     Active Substance: MEPOLIZUMAB
     Indication: ASTHMA
     Dosage: 100 MG, UNK
     Route: 058
     Dates: start: 20180927, end: 20190130
  2. SINGULAIR TABLETS [Concomitant]
     Indication: ASTHMA
     Dosage: 10 MG, 1D
  3. EPINASTINE TABLET [Concomitant]
     Indication: ASTHMA
     Dosage: 20 MG, 1D
  4. THEOPHYLLINE [Concomitant]
     Active Substance: THEOPHYLLINE ANHYDROUS
     Indication: ASTHMA
     Dosage: 400 MG, 1D
  5. ADOAIR [Concomitant]
     Active Substance: FLUTICASONE PROPIONATE\SALMETEROL XINAFOATE
     Indication: ASTHMA
     Dosage: 500 ?G, 1D

REACTIONS (1)
  - Death [Fatal]

NARRATIVE: CASE EVENT DATE: 20190417
